FAERS Safety Report 7586448-5 (Version None)
Quarter: 2011Q3

REPORT INFORMATION
  Report Type: 
  Country: None (occurrence: None)
  Receive Date: 20110701
  Receipt Date: 20110627
  Transmission Date: 20111222
  Serious: Yes (Hospitalization)
  Sender: FDA-Public Use
  Company Number: B0730278A

PATIENT
  Sex: Female

DRUGS (4)
  1. UNKNOWN DRUG [Concomitant]
     Route: 048
  2. LAMICTAL [Suspect]
     Dosage: 50MG PER DAY
     Route: 048
     Dates: start: 20110526, end: 20110612
  3. SURMONTIL [Concomitant]
  4. LYRICA [Concomitant]

REACTIONS (2)
  - SKIN LESION [None]
  - MUCOSAL EXFOLIATION [None]
